FAERS Safety Report 5608957-8 (Version None)
Quarter: 2008Q1

REPORT INFORMATION
  Report Type: 
  Country: None (occurrence: None)
  Receive Date: 20080129
  Receipt Date: 20080129
  Transmission Date: 20080703
  Serious: Yes (Hospitalization, Other)
  Sender: FDA-Public Use
  Company Number: None

PATIENT
  Age: 53 Year
  Sex: Female
  Weight: 98.8842 kg

DRUGS (1)
  1. LYRICA [Suspect]
     Indication: FIBROMYALGIA
     Dosage: 1 CAPSULE  BID  PO
     Route: 048
     Dates: start: 20071107, end: 20071121

REACTIONS (3)
  - CELLULITIS [None]
  - FLUID RETENTION [None]
  - WEIGHT INCREASED [None]
